FAERS Safety Report 7668133-4 (Version None)
Quarter: 2011Q3

REPORT INFORMATION
  Report Type: 
  Country: None (occurrence: None)
  Receive Date: 20110808
  Receipt Date: 20110725
  Transmission Date: 20111222
  Serious: Yes (Other)
  Sender: FDA-Public Use
  Company Number: PHHY2011US29427

PATIENT
  Sex: Male
  Weight: 86.5 kg

DRUGS (1)
  1. EXJADE [Suspect]
     Indication: SERUM FERRITIN INCREASED
     Dosage: 1875 MG, QD
     Route: 048
     Dates: start: 20110331, end: 20110606

REACTIONS (4)
  - DIARRHOEA [None]
  - VOMITING [None]
  - DYSGEUSIA [None]
  - WEIGHT DECREASED [None]
